FAERS Safety Report 13753472 (Version 1)
Quarter: 2017Q3

REPORT INFORMATION
  Report Type: Spontaneous
  Country: US (occurrence: US)
  Receive Date: 20170713
  Receipt Date: 20170713
  Transmission Date: 20171127
  Serious: Yes (Other)
  Sender: FDA-Public Use
  Company Number: PHEH2017US021223

PATIENT
  Sex: Male

DRUGS (2)
  1. AFINITOR [Suspect]
     Active Substance: EVEROLIMUS
     Indication: CARCINOID SYNDROME
     Dosage: 10 MG, QD
     Route: 048
  2. TELOTRISTAT ETHYL [Suspect]
     Active Substance: TELOTRISTAT ETHYL
     Indication: CARCINOID SYNDROME
     Dosage: 250 MG, TID
     Route: 048
     Dates: start: 20170401

REACTIONS (9)
  - Metastases to liver [Unknown]
  - Peripheral swelling [Unknown]
  - Abdominal pain [Unknown]
  - Cholecystitis [Unknown]
  - Back pain [Recovered/Resolved]
  - Joint swelling [Unknown]
  - Diarrhoea [Unknown]
  - Dehydration [Unknown]
  - Nausea [Unknown]
